FAERS Safety Report 5447927-X (Version None)
Quarter: 2007Q3

REPORT INFORMATION
  Report Type: 
  Country: None (occurrence: None)
  Receive Date: 20070910
  Receipt Date: 20070829
  Transmission Date: 20080115
  Serious: Yes (Hospitalization, Other)
  Sender: FDA-Public Use
  Company Number: US-PFIZER INC-2007072138

PATIENT
  Age: 49 Year
  Sex: Female
  Weight: 45.454 kg

DRUGS (4)
  1. SUTENT [Suspect]
     Indication: RENAL CELL CARCINOMA STAGE UNSPECIFIED
     Dates: start: 20070701, end: 20070820
  2. FOLIC ACID [Concomitant]
  3. VITAMIN CAP [Concomitant]
  4. LOPERAMIDE HCL [Concomitant]

REACTIONS (2)
  - EFFUSION [None]
  - PULMONARY EMBOLISM [None]
